FAERS Safety Report 21299619 (Version 1)
Quarter: 2022Q3

REPORT INFORMATION
  Report Type: Spontaneous
  Country: US (occurrence: None)
  Receive Date: 20220906
  Receipt Date: 20220906
  Transmission Date: 20221026
  Serious: No
  Sender: FDA-Public Use
  Company Number: None

PATIENT
  Age: 65 Year
  Sex: Female
  Weight: 59.42 kg

DRUGS (1)
  1. LORATADINE [Suspect]
     Active Substance: LORATADINE
     Indication: Seasonal allergy
     Dosage: FREQUENCY : DAILY;?
     Route: 048
     Dates: start: 20220301, end: 20220815

REACTIONS (6)
  - Nasal congestion [None]
  - Lethargy [None]
  - Pruritus [None]
  - Malaise [None]
  - Hyperhidrosis [None]
  - Rash [None]

NARRATIVE: CASE EVENT DATE: 20220815
